FAERS Safety Report 5080627-7 (Version None)
Quarter: 2006Q3

REPORT INFORMATION
  Report Type: 
  Country: None (occurrence: None)
  Receive Date: 20060814
  Receipt Date: 20060814
  Transmission Date: 20061208
  Serious: No
  Sender: FDA-Public Use
  Company Number: None

PATIENT
  Sex: Female
  Weight: 76.2 kg

DRUGS (2)
  1. CYTARABINE [Suspect]
     Dosage: 31320 MG
     Dates: start: 20040527
  2. G-CSF (FILGRASTIM, AMGEN) [Suspect]
     Dosage: 7200 MCG
     Dates: start: 20040611

REACTIONS (1)
  - ANOREXIA [None]
